FAERS Safety Report 5843605-3 (Version None)
Quarter: 2008Q3

REPORT INFORMATION
  Report Type: 
  Country: None (occurrence: None)
  Receive Date: 20080813
  Receipt Date: 20080610
  Transmission Date: 20090109
  Serious: No
  Sender: FDA-Public Use
  Company Number: A0732236A

PATIENT
  Age: 83 Year
  Sex: Female

DRUGS (3)
  1. COREG CR [Suspect]
     Indication: HYPERTENSION
     Dosage: 20MG SINGLE DOSE
     Route: 048
     Dates: start: 20080606, end: 20080606
  2. CATAPRES-TTS-1 [Concomitant]
  3. VALIUM [Concomitant]

REACTIONS (5)
  - LIMB DISCOMFORT [None]
  - SLUGGISHNESS [None]
  - SWELLING [None]
  - URINE OUTPUT DECREASED [None]
  - VERTIGO [None]
